FAERS Safety Report 24861613 (Version 4)
Quarter: 2025Q1

REPORT INFORMATION
  Report Type: Spontaneous
  Country: JP (occurrence: JP)
  Receive Date: 20250120
  Receipt Date: 20250313
  Transmission Date: 20250408
  Serious: No
  Sender: ASTELLAS
  Company Number: JP-ASTELLAS-2024JP005433

PATIENT
  Age: 53 Year
  Sex: Male

DRUGS (6)
  1. VYLOY [Suspect]
     Active Substance: ZOLBETUXIMAB-CLZB
     Indication: Gastric cancer
     Route: 042
     Dates: start: 20240726, end: 20240726
  2. VYLOY [Suspect]
     Active Substance: ZOLBETUXIMAB-CLZB
     Route: 042
  3. VYLOY [Suspect]
     Active Substance: ZOLBETUXIMAB-CLZB
     Route: 042
     Dates: start: 20250116
  4. CAPECITABINE [Concomitant]
     Active Substance: CAPECITABINE
     Indication: Gastric cancer
     Route: 065
  5. OXALIPLATIN [Concomitant]
     Active Substance: OXALIPLATIN
     Indication: Gastric cancer
     Route: 065
  6. PRIMPERAN [Concomitant]
     Active Substance: METOCLOPRAMIDE HYDROCHLORIDE
     Indication: Nausea
     Route: 042
     Dates: start: 20240726

REACTIONS (4)
  - Nausea [Recovered/Resolved]
  - Nausea [Unknown]
  - Hypoalbuminaemia [Unknown]
  - Gastrointestinal mucosal disorder [Unknown]

NARRATIVE: CASE EVENT DATE: 20240726
